FAERS Safety Report 5704642-2 (Version None)
Quarter: 2008Q2

REPORT INFORMATION
  Report Type: 
  Country: None (occurrence: None)
  Receive Date: 20080414
  Receipt Date: 20080328
  Transmission Date: 20081010
  Serious: Yes (Hospitalization)
  Sender: FDA-Public Use
  Company Number: AT-ASTRAZENECA-2008SE01874

PATIENT
  Age: 83 Year
  Sex: Female
  Weight: 57 kg

DRUGS (4)
  1. BLOPRESS [Suspect]
     Indication: ESSENTIAL HYPERTENSION
     Route: 048
     Dates: start: 19980514
  2. DIAMICRON [Concomitant]
     Route: 048
  3. BEZAFIBRATE [Concomitant]
     Route: 048
  4. UROSIN [Concomitant]
     Route: 048

REACTIONS (1)
  - CIRCULATORY COLLAPSE [None]
